FAERS Safety Report 17248659 (Version 1)
Quarter: 2020Q1

REPORT INFORMATION
  Report Type: Spontaneous
  Country: US (occurrence: US)
  Receive Date: 20200108
  Receipt Date: 20200108
  Transmission Date: 20200409
  Serious: No
  Sender: FDA-Public Use
  Company Number: US-BAYER-2020-002593

PATIENT
  Age: 90 Year
  Sex: Female

DRUGS (2)
  1. SIMILAC [Concomitant]
     Active Substance: DEXTROSE\WATER
     Dosage: UNK
  2. MIRALAX [Suspect]
     Active Substance: POLYETHYLENE GLYCOL 3350
     Dosage: 2 DF, QD
     Route: 048
     Dates: start: 20200101, end: 20200103

REACTIONS (3)
  - Product closure removal difficult [None]
  - Physical product label issue [None]
  - Diarrhoea [Unknown]

NARRATIVE: CASE EVENT DATE: 20200104
